FAERS Safety Report 5327165-1 (Version None)
Quarter: 2007Q2

REPORT INFORMATION
  Report Type: 
  Country: None (occurrence: None)
  Receive Date: 20070511
  Receipt Date: 20070502
  Transmission Date: 20071010
  Serious: Yes (Hospitalization)
  Sender: FDA-Public Use
  Company Number: 233611K07USA

PATIENT
  Age: 43 Year
  Sex: Female
  Weight: 76.6579 kg

DRUGS (6)
  1. REBIF [Suspect]
     Indication: MULTIPLE SCLEROSIS
     Dosage: 44 MCG
     Dates: end: 20061020
  2. PREMARIN [Concomitant]
  3. SYNTHROID [Concomitant]
  4. TOPAMAX [Concomitant]
  5. ALLEGRA-D (ALLEGRA-D /01367401/) [Concomitant]
  6. TRAZODONE HCL [Concomitant]

REACTIONS (1)
  - INFECTION [None]
